FAERS Safety Report 5796631-7 (Version None)
Quarter: 2008Q2

REPORT INFORMATION
  Report Type: 
  Country: None (occurrence: None)
  Receive Date: 20080630
  Receipt Date: 20080630
  Transmission Date: 20081010
  Serious: Yes (Hospitalization)
  Sender: FDA-Public Use
  Company Number: None

PATIENT
  Age: 58 Year
  Sex: Male
  Weight: 124 kg

DRUGS (2)
  1. CLOPIDOGREL [Suspect]
     Dosage: 1 TAB EVERY DAY PO
     Route: 048
     Dates: start: 20080318, end: 20080628
  2. ASPIRIN [Suspect]
     Dosage: 1 TAB EVERY DAY PO
     Route: 048
     Dates: start: 19970528, end: 20080628

REACTIONS (8)
  - DIVERTICULUM [None]
  - DUODENAL ULCER [None]
  - GASTRITIS EROSIVE [None]
  - GASTROINTESTINAL HAEMORRHAGE [None]
  - HAEMATEMESIS [None]
  - HAEMORRHOIDS [None]
  - HELICOBACTER PYLORI IDENTIFICATION TEST POSITIVE [None]
  - RECTAL POLYP [None]
